FAERS Safety Report 4636543-5 (Version None)
Quarter: 2005Q2

REPORT INFORMATION
  Report Type: 
  Country: None (occurrence: None)
  Receive Date: 20050415
  Receipt Date: 20050409
  Transmission Date: 20051028
  Serious: Yes (Other)
  Sender: FDA-Public Use
  Company Number: GB-GLAXOSMITHKLINE-B0377370A

PATIENT
  Age: 73 Year
  Sex: Male
  Weight: 61.7 kg

DRUGS (3)
  1. AVODART [Suspect]
     Indication: BENIGN PROSTATIC HYPERPLASIA
     Dosage: 500MCG UNKNOWN
     Route: 048
     Dates: start: 20041001, end: 20041101
  2. ATENOLOL [Concomitant]
     Dosage: 50MG PER DAY
     Route: 065
  3. ASPIRIN [Concomitant]
     Dosage: 75MG PER DAY
     Route: 065

REACTIONS (1)
  - DYSPNOEA [None]
